FAERS Safety Report 21375761 (Version 2)
Quarter: 2022Q4

REPORT INFORMATION
  Report Type: Other
  Country: CA (occurrence: CA)
  Receive Date: 20220926
  Receipt Date: 20221019
  Transmission Date: 20230113
  Serious: Yes (Other)
  Sender: FDA-Public Use
  Company Number: CA-APOTEX-2022AP013246

PATIENT
  Age: 44 Year
  Sex: Female

DRUGS (3)
  1. TRAMADOL [Suspect]
     Active Substance: TRAMADOL
     Indication: Procedural pain
     Dosage: UNK
     Route: 065
  2. CONTRAVE [Suspect]
     Active Substance: BUPROPION HYDROCHLORIDE\NALTREXONE HYDROCHLORIDE
     Indication: Weight control
     Dosage: 2 DOSAGE FORM, Q.12H
     Route: 048
  3. CONTRAVE [Suspect]
     Active Substance: BUPROPION HYDROCHLORIDE\NALTREXONE HYDROCHLORIDE
     Dosage: UNK
     Route: 048

REACTIONS (4)
  - Breast mass [Unknown]
  - Contraindicated product administered [Unknown]
  - Intentional dose omission [Unknown]
  - Drug ineffective [Unknown]
